FAERS Safety Report 9100605 (Version 3)
Quarter: 2013Q1

REPORT INFORMATION
  Report Type: Spontaneous
  Country: GB (occurrence: GB)
  Receive Date: 20130215
  Receipt Date: 20130304
  Transmission Date: 20140127
  Serious: Yes (Congenital Anomaly)
  Sender: FDA-Public Use
  Company Number: GB-JNJFOC-20130200409

PATIENT
  Sex: Male

DRUGS (11)
  1. HALOPERIDOL [Suspect]
     Indication: MATERNAL EXPOSURE BEFORE PREGNANCY
     Route: 050
  2. DROLEPTAN [Suspect]
     Indication: MATERNAL EXPOSURE BEFORE PREGNANCY
     Route: 050
  3. VALIUM [Suspect]
     Indication: MATERNAL EXPOSURE BEFORE PREGNANCY
     Route: 050
  4. SPARINE [Suspect]
     Indication: MATERNAL EXPOSURE BEFORE PREGNANCY
     Route: 050
  5. DEPIXOL [Suspect]
     Indication: MATERNAL EXPOSURE BEFORE PREGNANCY
     Route: 050
  6. DISIPAL [Suspect]
     Indication: MATERNAL EXPOSURE BEFORE PREGNANCY
     Route: 050
  7. ISTIN [Suspect]
     Indication: MATERNAL EXPOSURE BEFORE PREGNANCY
     Route: 050
  8. KEMADRIN [Suspect]
     Indication: MATERNAL EXPOSURE BEFORE PREGNANCY
     Route: 050
  9. NORMAXIN [Suspect]
     Indication: MATERNAL EXPOSURE BEFORE PREGNANCY
     Route: 050
  10. RELACTON-C [Suspect]
     Indication: MATERNAL EXPOSURE BEFORE PREGNANCY
     Route: 050
  11. SURMONTIL [Suspect]
     Indication: MATERNAL EXPOSURE BEFORE PREGNANCY
     Route: 050

REACTIONS (2)
  - Respiratory disorder [Unknown]
  - Lymphadenopathy [Unknown]
